FAERS Safety Report 23108522 (Version 2)
Quarter: 2023Q4

REPORT INFORMATION
  Report Type: Spontaneous
  Country: JP (occurrence: JP)
  Receive Date: 20231026
  Receipt Date: 20231113
  Transmission Date: 20240110
  Serious: Yes (Death, Hospitalization)
  Sender: FDA-Public Use
  Company Number: JP-BAYER-2023A149955

PATIENT
  Age: 8 Decade
  Sex: Female

DRUGS (15)
  1. ADEMPAS [Suspect]
     Active Substance: RIOCIGUAT
     Indication: Pulmonary hypertension
     Dosage: DAILY DOSE 1.5 MG
  2. ADEMPAS [Suspect]
     Active Substance: RIOCIGUAT
     Indication: Pulmonary veno-occlusive disease
     Dosage: DAILY DOSE 3 MG
  3. ADEMPAS [Suspect]
     Active Substance: RIOCIGUAT
     Indication: Pulmonary hypertension
     Dosage: DAILY DOSE 1.5 MG
  4. MACITENTAN [Concomitant]
     Active Substance: MACITENTAN
     Indication: Pulmonary hypertension
     Dosage: 5MG
  5. MACITENTAN [Concomitant]
     Active Substance: MACITENTAN
     Indication: Pulmonary hypertension
     Dosage: 10MG
  6. SELEXIPAG [Concomitant]
     Active Substance: SELEXIPAG
     Indication: Pulmonary hypertension
     Dosage: 0.4MG
  7. SELEXIPAG [Concomitant]
     Active Substance: SELEXIPAG
     Indication: Pulmonary hypertension
     Dosage: 0.8MG
  8. SELEXIPAG [Concomitant]
     Active Substance: SELEXIPAG
     Indication: Pulmonary hypertension
     Dosage: 1.0MG
  9. WHOLE BLOOD [Concomitant]
     Active Substance: WHOLE BLOOD
     Indication: Transfusion
  10. WHOLE BLOOD [Concomitant]
     Active Substance: WHOLE BLOOD
     Indication: Myelodysplastic syndrome
  11. FUROSEMIDE [Concomitant]
     Active Substance: FUROSEMIDE
     Dosage: 20MG
     Route: 048
  12. SPIRONOLACTONE [Concomitant]
     Active Substance: SPIRONOLACTONE
     Dosage: 25MG
     Route: 048
  13. BISOPROLOL [Concomitant]
     Active Substance: BISOPROLOL\BISOPROLOL FUMARATE
     Dosage: 2.5MG
     Route: 048
  14. APIXABAN [Concomitant]
     Active Substance: APIXABAN
     Dosage: 10MG
     Route: 048
  15. MOSAPRIDE [Concomitant]
     Active Substance: MOSAPRIDE
     Dosage: 15MG
     Route: 048

REACTIONS (4)
  - Pulmonary veno-occlusive disease [Fatal]
  - Respiratory failure [Fatal]
  - Dyspnoea [None]
  - Oxygen saturation decreased [None]
